FAERS Safety Report 4815635-1 (Version None)
Quarter: 2005Q4

REPORT INFORMATION
  Report Type: 
  Country: None (occurrence: None)
  Receive Date: 20051027
  Receipt Date: 20051017
  Transmission Date: 20060501
  Serious: Yes (Hospitalization)
  Sender: FDA-Public Use
  Company Number: 2005121924

PATIENT
  Age: 66 Year
  Sex: Female
  Weight: 70 kg

DRUGS (5)
  1. AZULFIDINE [Suspect]
     Indication: RHEUMATOID ARTHRITIS
     Dosage: 1000 MG (500 MG, 2 IN 1 D), ORAL
     Route: 048
     Dates: start: 20050715, end: 20050815
  2. NEORAL [Suspect]
     Indication: INTERSTITIAL LUNG DISEASE
     Dosage: 100 MG (50 MG, 2 IN 1D), ORAL
     Route: 048
     Dates: start: 20050715, end: 20050826
  3. ZANTAC [Concomitant]
  4. RISEDRONATE SODIUM HYDRATE (RISEDRONATE SODIUM) [Concomitant]
  5. PREDNISOLONE [Concomitant]

REACTIONS (4)
  - CONVULSION [None]
  - DEPRESSED LEVEL OF CONSCIOUSNESS [None]
  - TEMPORAL LOBE EPILEPSY [None]
  - TONIC CONVULSION [None]
